FAERS Safety Report 9024284 (Version 32)
Quarter: 2016Q1

REPORT INFORMATION
  Report Type: Report from Study
  Country: CA (occurrence: CA)
  Receive Date: 20130121
  Receipt Date: 20160310
  Transmission Date: 20160526
  Serious: Yes (Hospitalization, Other)
  Sender: FDA-Public Use
  Company Number: PHHY2012CA083301

PATIENT
  Age: 78 Year
  Sex: Female

DRUGS (8)
  1. TARO-WARFARIN [Concomitant]
     Active Substance: WARFARIN
     Indication: PRODUCT USED FOR UNKNOWN INDICATION
     Dosage: 5 MG, QD (DAILY IN AM)
     Route: 065
  2. SANDOSTATIN LAR DEPOT [Suspect]
     Active Substance: OCTREOTIDE ACETATE
     Indication: GASTROINTESTINAL HAEMORRHAGE
  3. SANDOSTATIN LAR DEPOT [Suspect]
     Active Substance: OCTREOTIDE ACETATE
     Indication: IRON DEFICIENCY
     Dosage: 20 MG, QMO
     Route: 030
     Dates: start: 20101001
  4. XARELTO [Concomitant]
     Active Substance: RIVAROXABAN
     Indication: ATRIAL FIBRILLATION
     Route: 065
  5. APO ATENOLOL [Concomitant]
     Indication: PRODUCT USED FOR UNKNOWN INDICATION
     Dosage: 50 MG, QD
     Route: 065
  6. DIGOXIN. [Concomitant]
     Active Substance: DIGOXIN
     Indication: PRODUCT USED FOR UNKNOWN INDICATION
     Dosage: 0.125 MG, QD
     Route: 065
  7. COUMADINE [Concomitant]
     Active Substance: WARFARIN SODIUM
     Indication: PRODUCT USED FOR UNKNOWN INDICATION
     Dosage: 1.5 DF, QD
     Route: 065
  8. FUROSEMIDE. [Concomitant]
     Active Substance: FUROSEMIDE
     Indication: PRODUCT USED FOR UNKNOWN INDICATION
     Dosage: 80 MG, QD
     Route: 065

REACTIONS (52)
  - Multi-organ disorder [Unknown]
  - Asthenia [Not Recovered/Not Resolved]
  - Dyspnoea [Unknown]
  - International normalised ratio increased [Unknown]
  - Dizziness [Not Recovered/Not Resolved]
  - Oral infection [Unknown]
  - Malaise [Unknown]
  - Pain in extremity [Unknown]
  - Venous haemorrhage [Unknown]
  - Pleural effusion [Unknown]
  - Atrial fibrillation [Unknown]
  - Arthralgia [Not Recovered/Not Resolved]
  - Neck pain [Unknown]
  - Hypersomnia [Unknown]
  - Blood glucose increased [Unknown]
  - Melaena [Unknown]
  - Cellulitis [Unknown]
  - Bursitis [Unknown]
  - Ascites [Unknown]
  - Pulmonary hypertension [Unknown]
  - Chest discomfort [Recovered/Resolved]
  - Paralysis [Unknown]
  - Drug ineffective [Unknown]
  - Erythema [Unknown]
  - Thrombosis [Unknown]
  - Post procedural complication [Unknown]
  - Scleroderma [Unknown]
  - Haematochezia [Unknown]
  - Joint swelling [Unknown]
  - Pain [Unknown]
  - Pallor [Unknown]
  - Haemoglobin decreased [Unknown]
  - Skin infection [Recovering/Resolving]
  - Injection site haemorrhage [Unknown]
  - Nausea [Unknown]
  - Pyrexia [Unknown]
  - Arthritis [Unknown]
  - Faeces discoloured [Unknown]
  - Cardiac failure [Unknown]
  - Haemoglobin decreased [Recovered/Resolved]
  - Cyst [Unknown]
  - Fatigue [Recovered/Resolved]
  - Rectal haemorrhage [Unknown]
  - Hip fracture [Unknown]
  - Urinary tract infection [Recovering/Resolving]
  - Wound [Unknown]
  - Product use issue [Unknown]
  - Chest pain [Recovered/Resolved]
  - Femur fracture [Recovering/Resolving]
  - Cardiac failure congestive [Unknown]
  - Back pain [Not Recovered/Not Resolved]
  - Blood pressure systolic increased [Unknown]

NARRATIVE: CASE EVENT DATE: 20131125
